FAERS Safety Report 8696104 (Version 2)
Quarter: 2013Q4

REPORT INFORMATION
  Report Type: Spontaneous
  Country: US (occurrence: US)
  Receive Date: 20120801
  Receipt Date: 20131031
  Transmission Date: 20140711
  Serious: Yes (Hospitalization)
  Sender: FDA-Public Use
  Company Number: US-009507513-1207USA010812

PATIENT
  Sex: Female

DRUGS (7)
  1. JANUVIA [Suspect]
     Route: 048
  2. FENTANYL [Suspect]
     Route: 062
  3. PLACEBO (UNSPECIFIED) [Suspect]
     Route: 048
  4. METFORMIN HYDROCHLORIDE [Suspect]
     Route: 048
  5. SAXAGLIPTIN [Suspect]
     Route: 048
  6. DIURETIC (UNSPECIFIED) [Concomitant]
  7. ASPIRIN [Concomitant]

REACTIONS (7)
  - Anxiety [Unknown]
  - Psychotic disorder [Unknown]
  - Psychosomatic disease [Unknown]
  - Atrial fibrillation [Unknown]
  - Blood glucose increased [Unknown]
  - Haemoglobin decreased [Unknown]
  - Vomiting [Unknown]
